FAERS Safety Report 8847027 (Version 1)
Quarter: 2012Q4

REPORT INFORMATION
  Report Type: Spontaneous
  Country: KP (occurrence: None)
  Receive Date: 20121016
  Receipt Date: 20121016
  Transmission Date: 20130627
  Serious: Yes (Death, Hospitalization)
  Sender: FDA-Public Use
  Company Number: US-2012-10983

PATIENT
  Age: 46 Year
  Sex: Male

DRUGS (3)
  1. CILOSTAZOL [Suspect]
  2. TICLOPIDINE [Concomitant]
  3. ASPIRIN [Concomitant]

REACTIONS (6)
  - Acute myocardial infarction [None]
  - Arterial restenosis [None]
  - Hypotension [None]
  - Respiratory failure [None]
  - Pneumonia [None]
  - Pulmonary oedema [None]
